FAERS Safety Report 9803676 (Version 1)
Quarter: 2014Q1

REPORT INFORMATION
  Report Type: Spontaneous
  Country: US (occurrence: US)
  Receive Date: 20140108
  Receipt Date: 20140108
  Transmission Date: 20141002
  Serious: No
  Sender: FDA-Public Use
  Company Number: US-GLAXOSMITHKLINE-A1022669A

PATIENT
  Age: 55 Year
  Sex: Male

DRUGS (5)
  1. LOVAZA [Suspect]
     Indication: HYPERLIPIDAEMIA
     Dosage: 2CAP TWICE PER DAY
     Route: 048
     Dates: start: 2010
  2. LISINOPRIL [Concomitant]
  3. BABY ASPIRIN [Concomitant]
  4. MULTIVITAMIN [Concomitant]
  5. PROBIOTIC [Concomitant]

REACTIONS (8)
  - Dysgeusia [Recovering/Resolving]
  - Parosmia [Unknown]
  - Chills [Unknown]
  - Hyperhidrosis [Unknown]
  - Malaise [Recovered/Resolved]
  - Abdominal pain upper [Unknown]
  - Nausea [Unknown]
  - Food poisoning [Unknown]
